FAERS Safety Report 6381767-2 (Version None)
Quarter: 2009Q3

REPORT INFORMATION
  Report Type: 
  Country: None (occurrence: None)
  Receive Date: 20090930
  Receipt Date: 20090917
  Transmission Date: 20100115
  Serious: Yes (Other)
  Sender: FDA-Public Use
  Company Number: US-CELGENEUS-163-21880-09061641

PATIENT
  Sex: Female

DRUGS (3)
  1. REVLIMID [Suspect]
     Indication: MULTIPLE MYELOMA
     Route: 048
     Dates: start: 20090101, end: 20090701
  2. REVLIMID [Suspect]
     Route: 048
     Dates: start: 20090424, end: 20090101
  3. REVLIMID [Suspect]
     Route: 048
     Dates: start: 20090901

REACTIONS (6)
  - AGEUSIA [None]
  - CONSTIPATION [None]
  - HYPERSENSITIVITY [None]
  - MUSCLE SPASMS [None]
  - NEUROPATHY PERIPHERAL [None]
  - RASH MACULO-PAPULAR [None]
